FAERS Safety Report 9068823 (Version 2)
Quarter: 2013Q1

REPORT INFORMATION
  Report Type: Spontaneous
  Country: US (occurrence: None)
  Receive Date: 20130212
  Receipt Date: 20130212
  Transmission Date: 20140127
  Serious: Yes (Life-Threatening)
  Sender: FDA-Public Use
  Company Number: None

PATIENT
  Sex: Female

DRUGS (1)
  1. FORTEO [Suspect]
     Indication: OSTEOPOROSIS PROPHYLAXIS
     Dosage: FORTEO 20MCG SUB-Q DAILY
     Route: 058
     Dates: start: 20121011, end: 20130201

REACTIONS (5)
  - Gastrooesophageal reflux disease [None]
  - Gastrooesophageal reflux disease [None]
  - Aspiration [None]
  - Choking [None]
  - Middle insomnia [None]
